FAERS Safety Report 8513622-3 (Version None)
Quarter: 2012Q3

REPORT INFORMATION
  Report Type: 
  Country: None (occurrence: None)
  Receive Date: 20120717
  Receipt Date: 20120713
  Transmission Date: 20120928
  Serious: No
  Sender: FDA-Public Use
  Company Number: US-PFIZER INC-2012169686

PATIENT
  Sex: Male
  Weight: 65.76 kg

DRUGS (5)
  1. TIKOSYN [Suspect]
     Indication: ATRIAL FIBRILLATION
     Dosage: 25 MG, 2X/DAY
  2. PRAVASTATIN [Concomitant]
     Indication: BLOOD CHOLESTEROL ABNORMAL
     Dosage: UNK
  3. LEVOTHYROXINE SODIUM [Concomitant]
     Dosage: UNK
  4. METOPROLOL [Concomitant]
     Dosage: 25 MG, 2X/DAY
  5. WARFARIN [Concomitant]
     Dosage: UNK, 2X/DAY

REACTIONS (1)
  - TINNITUS [None]
